FAERS Safety Report 21967712 (Version 1)
Quarter: 2023Q1

REPORT INFORMATION
  Report Type: Spontaneous
  Country: FR (occurrence: FR)
  Receive Date: 20230208
  Receipt Date: 20230208
  Transmission Date: 20230417
  Serious: Yes (Death)
  Sender: FDA-Public Use
  Company Number: None

PATIENT
  Age: 68 Year
  Sex: Male

DRUGS (6)
  1. CLOZAPINE [Suspect]
     Active Substance: CLOZAPINE
     Indication: Medication error
     Dosage: 250MG
     Dates: start: 20220814, end: 20220814
  2. LYRICA [Suspect]
     Active Substance: PREGABALIN
     Indication: Medication error
     Dates: start: 20220814, end: 20220814
  3. LACTULOSE\PARAFFIN [Suspect]
     Active Substance: LACTULOSE\PARAFFIN
     Indication: Medication error
     Dosage: 1 TEASPOON  , ORAL JELLY IN JAR
     Dates: start: 20220814, end: 20220814
  4. ARTANE [Suspect]
     Active Substance: TRIHEXYPHENIDYL HYDROCHLORIDE
     Indication: Medication error
     Dates: start: 20220814, end: 20220814
  5. AMISULPRIDE [Suspect]
     Active Substance: AMISULPRIDE
     Indication: Medication error
     Dosage: 400MG
     Dates: start: 20220814, end: 20220814
  6. VALPROATE SODIUM [Suspect]
     Active Substance: VALPROATE SODIUM
     Indication: Medication error
     Dosage: 750MG
     Dates: start: 20220814, end: 20220814

REACTIONS (3)
  - Hypotension [Fatal]
  - Hypoxia [Fatal]
  - Wrong patient received product [Recovered/Resolved]

NARRATIVE: CASE EVENT DATE: 20220814
